FAERS Safety Report 4985019-4 (Version None)
Quarter: 2006Q2

REPORT INFORMATION
  Report Type: 
  Country: None (occurrence: None)
  Receive Date: 20060421
  Receipt Date: 20060407
  Transmission Date: 20061013
  Serious: Yes (Other)
  Sender: FDA-Public Use
  Company Number: US017060

PATIENT
  Age: 65 Year
  Sex: Male

DRUGS (2)
  1. ALERTEC [Suspect]
     Indication: NARCOLEPSY
     Dosage: 50 MG QD ORAL
     Route: 048
  2. FLOMAX [Concomitant]

REACTIONS (3)
  - CEREBROVASCULAR ACCIDENT [None]
  - FEELING JITTERY [None]
  - MUSCULAR WEAKNESS [None]
